FAERS Safety Report 21075841 (Version 1)
Quarter: 2022Q3

REPORT INFORMATION
  Report Type: Spontaneous
  Country: US (occurrence: None)
  Receive Date: 20220712
  Receipt Date: 20220712
  Transmission Date: 20221026
  Serious: No
  Sender: FDA-Public Use
  Company Number: None

PATIENT
  Age: 53 Year
  Sex: Female

DRUGS (1)
  1. HUMIRA [Suspect]
     Active Substance: ADALIMUMAB
     Dosage: 40MG EVERY OTHER WEE OTHER SUBCUTANEOUS?
     Route: 058
     Dates: start: 20200826

REACTIONS (6)
  - Pharyngeal mass [None]
  - Nephrolithiasis [None]
  - Kidney infection [None]
  - Gallbladder operation [None]
  - Drug ineffective [None]
  - Therapy interrupted [None]

NARRATIVE: CASE EVENT DATE: 20211001
